FAERS Safety Report 25041409 (Version 3)
Quarter: 2025Q3

REPORT INFORMATION
  Report Type: Report from Study
  Country: US (occurrence: US)
  Receive Date: 20250305
  Receipt Date: 20250929
  Transmission Date: 20251021
  Serious: Yes (Other)
  Sender: ACADIA PHARMACEUTICALS
  Company Number: US-ACADIA PHARMACEUTICALS INC.-ACA-2025-PIM-001914

PATIENT

DRUGS (32)
  1. NUPLAZID [Suspect]
     Active Substance: PIMAVANSERIN TARTRATE
     Indication: Parkinson^s disease psychosis
     Dosage: 34 MILLIGRAM, QD
     Route: 048
     Dates: start: 202302
  2. MIRALAX [Concomitant]
     Active Substance: POLYETHYLENE GLYCOL 3350
  3. PSYLLIUM [PLANTAGO INDICA] [Concomitant]
     Dosage: UNK, QD
  4. AMLODIPINE [Concomitant]
     Active Substance: AMLODIPINE BESYLATE
  5. DONEPEZIL [Concomitant]
     Active Substance: DONEPEZIL
  6. ACETAMINOPHEN [Concomitant]
     Active Substance: ACETAMINOPHEN
  7. COLACE [Concomitant]
     Active Substance: DOCUSATE SODIUM
  8. VITAMINS [Concomitant]
     Active Substance: VITAMINS
  9. FISH OIL [Concomitant]
     Active Substance: FISH OIL
  10. CALCIUM [Concomitant]
     Active Substance: CALCIUM
  11. CARBIDOPA AND LEVODOPA [Concomitant]
     Active Substance: CARBIDOPA\LEVODOPA
  12. BUPROPION [Concomitant]
     Active Substance: BUPROPION
  13. MYOLAX [NIFEDIPINE] [Concomitant]
  14. METHOCARBAMOL [Concomitant]
     Active Substance: METHOCARBAMOL
  15. MAGNESIUM [Concomitant]
     Active Substance: MAGNESIUM
  16. BUPROPION HYDROCHLORIDE XL [Concomitant]
     Active Substance: BUPROPION HYDROCHLORIDE
     Dosage: 150 MILLIGRAM, QD
  17. SINEMET [Concomitant]
     Active Substance: CARBIDOPA\LEVODOPA
  18. SINEMET [Concomitant]
     Active Substance: CARBIDOPA\LEVODOPA
     Dosage: UNK, TID
  19. TAMSULOSIN HYDROCHLORIDE [Concomitant]
     Active Substance: TAMSULOSIN HYDROCHLORIDE
     Dosage: 0.4 MILLIGRAM, QD
  20. TYLENOL [Concomitant]
     Active Substance: ACETAMINOPHEN
  21. CANNABIS SATIVA FLOWERING TOP [Concomitant]
     Active Substance: CANNABIS SATIVA FLOWERING TOP
  22. VITAMIN D NOS [Concomitant]
     Active Substance: CHOLECALCIFEROL\ERGOCALCIFEROL
     Dosage: UNK, QD
  23. TADALAFIL [Concomitant]
     Active Substance: TADALAFIL
     Dosage: 10, QOD
  24. VITAMIN B COMPLEX [Concomitant]
     Active Substance: CYANOCOBALAMIN\DEXPANTHENOL\NIACINAMIDE\PYRIDOXINE HYDROCHLORIDE\RIBOFLAVIN 5^-PHOSPHATE SODIUM\THIA
     Dosage: UNK, QD
  25. OMEPRAZOLE [Concomitant]
     Active Substance: OMEPRAZOLE
     Dosage: UNK, 40 QD
  26. LISINOPRIL [Concomitant]
     Active Substance: LISINOPRIL
     Dosage: 20, QD
  27. SERTRALINE [Concomitant]
     Active Substance: SERTRALINE HYDROCHLORIDE
     Dosage: 100, QD
  28. NORVASC [Concomitant]
     Active Substance: AMLODIPINE BESYLATE
     Dosage: 10, QD
  29. PROBIOTICS NOS [Concomitant]
     Active Substance: PROBIOTICS NOS
     Dosage: UNK, QD
  30. CURCUMIN [Concomitant]
     Active Substance: CURCUMIN
     Dosage: UNK, QD
  31. ISONORM [Concomitant]
     Dosage: UNK, QD
  32. VITAMIN B12 [Concomitant]
     Active Substance: CYANOCOBALAMIN

REACTIONS (1)
  - Hallucination, visual [Recovering/Resolving]
